FAERS Safety Report 5252259-9 (Version None)
Quarter: 2007Q1

REPORT INFORMATION
  Report Type: 
  Country: None (occurrence: None)
  Receive Date: 20070301
  Receipt Date: 20070223
  Transmission Date: 20070707
  Serious: Yes (Hospitalization, Disabling)
  Sender: FDA-Public Use
  Company Number: HQWYE682223FEB07

PATIENT
  Sex: Male

DRUGS (9)
  1. CORDARONE [Suspect]
     Indication: TACHYARRHYTHMIA
     Route: 048
     Dates: end: 20061201
  2. CORVATON ^THERABEL^ [Concomitant]
     Indication: CORONARY ARTERY DISEASE
     Route: 048
  3. CORVATON ^THERABEL^ [Concomitant]
     Indication: ANGINA PECTORIS
  4. TORSEMIDE [Concomitant]
     Indication: CARDIAC FAILURE
     Route: 048
  5. ISMO - SLOW RELEASE [Concomitant]
     Indication: CORONARY ARTERY DISEASE
     Route: 048
  6. ISMO - SLOW RELEASE [Concomitant]
     Indication: ANGINA PECTORIS
  7. ENALAPRIL MALEATE [Concomitant]
     Indication: HYPERTENSION
     Route: 048
  8. PLAVIX [Concomitant]
     Indication: CORONARY ARTERY DISEASE
     Route: 048
  9. PLAVIX [Concomitant]
     Indication: CORONARY ARTERY BYPASS

REACTIONS (3)
  - ANAEMIA [None]
  - HYPOTHYROIDISM [None]
  - SINUS BRADYCARDIA [None]
